FAERS Safety Report 5146207-X (Version None)
Quarter: 2006Q4

REPORT INFORMATION
  Report Type: 
  Country: None (occurrence: None)
  Receive Date: 20061106
  Receipt Date: 20061106
  Transmission Date: 20070319
  Serious: Yes (Other)
  Sender: FDA-Public Use
  Company Number: None

PATIENT
  Age: 56 Year
  Sex: Female
  Weight: 81.6475 kg

DRUGS (2)
  1. BONIVA [Suspect]
     Indication: OSTEOPOROSIS
     Dosage: ONE PILL MONTHLY PO
     Route: 048
     Dates: start: 20060922, end: 20060922
  2. BONIVA [Suspect]
     Indication: OSTEOPOROSIS
     Dosage: ONE PILL MONTHLY PO
     Route: 048
     Dates: start: 20061101, end: 20061101

REACTIONS (9)
  - ABASIA [None]
  - ARTHRALGIA [None]
  - BEDRIDDEN [None]
  - CHEST PAIN [None]
  - DIARRHOEA [None]
  - DRUG EFFECT DECREASED [None]
  - INFLUENZA LIKE ILLNESS [None]
  - INSOMNIA [None]
  - MUSCULOSKELETAL PAIN [None]
